FAERS Safety Report 4273779-X (Version None)
Quarter: 2004Q1

REPORT INFORMATION
  Report Type: 
  Country: None (occurrence: None)
  Receive Date: 20040114
  Receipt Date: 20031124
  Transmission Date: 20041129
  Serious: Yes (Hospitalization)
  Sender: FDA-Public Use
  Company Number: 03-0077

PATIENT
  Age: 83 Year
  Sex: Female

DRUGS (1)
  1. NITROLINGUAL PUMPSPRAY [Suspect]

REACTIONS (3)
  - CONFUSIONAL STATE [None]
  - DELIRIUM [None]
  - OVERDOSE [None]
